FAERS Safety Report 6233780-3 (Version None)
Quarter: 2009Q2

REPORT INFORMATION
  Report Type: 
  Country: None (occurrence: None)
  Receive Date: 20090615
  Receipt Date: 20090615
  Transmission Date: 20091009
  Serious: Yes (Other)
  Sender: FDA-Public Use
  Company Number: None

PATIENT
  Sex: Female

DRUGS (2)
  1. SINGULAIR [Suspect]
     Indication: ASTHMA
     Dosage: SINGULAR 4MG DAILY ORALLY
     Route: 048
     Dates: start: 20080901, end: 20090521
  2. SINGULAIR [Suspect]
     Indication: ASTHMA
     Dosage: SINGULAR 5MG ORALLY
     Route: 048
     Dates: start: 20090522

REACTIONS (3)
  - ABNORMAL BEHAVIOUR [None]
  - AGITATION [None]
  - SCREAMING [None]
